FAERS Safety Report 8859609 (Version 1)
Quarter: 2012Q4

REPORT INFORMATION
  Report Type: Spontaneous
  Country: US (occurrence: None)
  Receive Date: 20121022
  Receipt Date: 20121022
  Transmission Date: 20130627
  Serious: Yes (Hospitalization)
  Sender: FDA-Public Use
  Company Number: TPA2012A07389

PATIENT
  Age: 30 Year
  Sex: Female
  Weight: 119 kg

DRUGS (5)
  1. RAMELTEON [Suspect]
     Indication: BIPOLAR I DISORDER
     Dosage: 0.1 mg, 1 in 1 D, Sublingual
     Route: 060
     Dates: start: 20120907, end: 20120924
  2. LORATADINE  (LORATADINE) [Concomitant]
  3. ARIPIPRAZOLE (ARIPIPRAZOLE) [Concomitant]
  4. LEVONORGESTIREL (LEVONORGESTREL) [Concomitant]
  5. CHLORTHALIDONE (CHLORTALIDONE) [Concomitant]

REACTIONS (10)
  - Grand mal convulsion [None]
  - Hypokalaemia [None]
  - Headache [None]
  - Urinary tract infection [None]
  - Dysstasia [None]
  - Blood chloride decreased [None]
  - Blood glucose increased [None]
  - Blood creatine phosphokinase increased [None]
  - Exophthalmos [None]
  - Brain scan abnormal [None]
